FAERS Safety Report 6649202-4 (Version None)
Quarter: 2010Q1

REPORT INFORMATION
  Report Type: 
  Country: None (occurrence: None)
  Receive Date: 20100324
  Receipt Date: 20100315
  Transmission Date: 20100710
  Serious: Yes (Hospitalization)
  Sender: FDA-Public Use
  Company Number: B0642138A

PATIENT
  Age: 75 Year
  Sex: Male

DRUGS (3)
  1. SEROXAT [Suspect]
     Indication: DEPRESSION
     Route: 048
  2. MADOPAR [Concomitant]
  3. UNSPECIFIED DRUG [Concomitant]

REACTIONS (1)
  - CHEST DISCOMFORT [None]
